FAERS Safety Report 24277709 (Version 2)
Quarter: 2025Q2

REPORT INFORMATION
  Report Type: Spontaneous
  Country: CN (occurrence: CN)
  Receive Date: 20240903
  Receipt Date: 20250608
  Transmission Date: 20250717
  Serious: Yes (Other)
  Sender: COHERUS
  Company Number: CN-SHANGHAI JUNSHI BIOSCIENCES CO., LTD.-CN2024011177

PATIENT

DRUGS (6)
  1. TORIPALIMAB [Suspect]
     Active Substance: TORIPALIMAB
     Indication: Ureteric cancer recurrent
     Route: 041
     Dates: start: 20240722, end: 20240722
  2. TORIPALIMAB [Suspect]
     Active Substance: TORIPALIMAB
     Indication: Metastatic lymphoma
  3. GEMCITABINE HYDROCHLORIDE [Suspect]
     Active Substance: GEMCITABINE HYDROCHLORIDE
     Indication: Ureteric cancer recurrent
     Route: 041
     Dates: start: 20240722, end: 20240722
  4. GEMCITABINE HYDROCHLORIDE [Suspect]
     Active Substance: GEMCITABINE HYDROCHLORIDE
     Indication: Metastatic lymphoma
  5. CISPLATIN [Suspect]
     Active Substance: CISPLATIN
     Indication: Ureteric cancer recurrent
     Dosage: 37 MG, QD
     Route: 041
     Dates: start: 20240722, end: 20240724
  6. CISPLATIN [Suspect]
     Active Substance: CISPLATIN
     Indication: Metastatic lymphoma

REACTIONS (2)
  - Myelosuppression [Recovering/Resolving]
  - Off label use [Unknown]

NARRATIVE: CASE EVENT DATE: 20240722
